FAERS Safety Report 4507661-7 (Version None)
Quarter: 2004Q4

REPORT INFORMATION
  Report Type: 
  Country: None (occurrence: None)
  Receive Date: 20041123
  Receipt Date: 20041112
  Transmission Date: 20050328
  Serious: Yes (Hospitalization)
  Sender: FDA-Public Use
  Company Number: FR-ABBOTT-04P-056-0280405-00

PATIENT
  Age: 75 Year
  Sex: Male

DRUGS (5)
  1. LIPANTHYL [Suspect]
     Indication: DYSLIPIDAEMIA
     Route: 048
     Dates: start: 20010101, end: 20031210
  2. ACETYLSALICYLATE LYSINE [Concomitant]
     Indication: DRUG USE FOR UNKNOWN INDICATION
     Dates: start: 20031115, end: 20031215
  3. CARBAMAZEPINE [Concomitant]
     Indication: DRUG USE FOR UNKNOWN INDICATION
     Dates: start: 20031115, end: 20031215
  4. PIRACETAM [Concomitant]
     Indication: DRUG USE FOR UNKNOWN INDICATION
     Dates: start: 20031117, end: 20031202
  5. ISOPHANE INSULIN [Concomitant]
     Indication: DRUG USE FOR UNKNOWN INDICATION
     Dosage: 16 IU IN MORNING; 12 IU IN EVENING
     Dates: start: 20011001, end: 20031217

REACTIONS (9)
  - DRUG RASH WITH EOSINOPHILIA AND SYSTEMIC SYMPTOMS [None]
  - EXANTHEM [None]
  - FACE OEDEMA [None]
  - GENERAL PHYSICAL HEALTH DETERIORATION [None]
  - HENOCH-SCHONLEIN PURPURA [None]
  - PRURITUS [None]
  - PYREXIA [None]
  - RASH PUSTULAR [None]
  - SKIN DESQUAMATION [None]
